FAERS Safety Report 10007373 (Version 2)
Quarter: 2014Q1

REPORT INFORMATION
  Report Type: Spontaneous
  Country: US (occurrence: US)
  Receive Date: 20140313
  Receipt Date: 20140313
  Transmission Date: 20141002
  Serious: No
  Sender: FDA-Public Use
  Company Number: US-BAXTER-2014BAX011722

PATIENT
  Sex: Male

DRUGS (3)
  1. DIANEAL LOW CALCIUM [Suspect]
     Indication: PERITONEAL DIALYSIS
     Route: 033
     Dates: start: 20130107
  2. DIANEAL LOW CALCIUM [Suspect]
     Route: 033
     Dates: start: 20140122
  3. DIANEAL LOW CALCIUM [Suspect]
     Route: 033
     Dates: start: 20140122

REACTIONS (1)
  - Peritoneal dialysis complication [Recovered/Resolved]
